FAERS Safety Report 9580874 (Version 1)
Quarter: 2013Q4

REPORT INFORMATION
  Report Type: Spontaneous
  Country: US (occurrence: US)
  Receive Date: 20131002
  Receipt Date: 20131002
  Transmission Date: 20140711
  Serious: Yes (Hospitalization)
  Sender: FDA-Public Use
  Company Number: US-B.I. PHARMACEUTICALS,INC./RIDGEFIELD-2013-BI-30782GD

PATIENT
  Age: 10 Year
  Sex: Male

DRUGS (5)
  1. DIPYRIDAMOLE [Suspect]
     Indication: ANTIPLATELET THERAPY
  2. ARGATROBAN [Suspect]
     Indication: ACTIVATED PARTIAL THROMBOPLASTIN TIME ABNORMAL
     Dosage: STARTED AT 2 MCG/KG/MIN THEN INCREASED TO 20 MCG/KG/MIN
  3. ARGATROBAN [Suspect]
     Dosage: }10 MG/KG/MIN, THEN GRADUALLY TAPERED
  4. ASPIRIN [Suspect]
     Indication: ANTIPLATELET THERAPY
  5. WARFARIN [Suspect]

REACTIONS (2)
  - Thrombosis in device [Unknown]
  - Thrombosis in device [Unknown]
